FAERS Safety Report 10473914 (Version 1)
Quarter: 2014Q3

REPORT INFORMATION
  Report Type: Spontaneous
  Country: VE (occurrence: VE)
  Receive Date: 20140924
  Receipt Date: 20140924
  Transmission Date: 20150326
  Serious: Yes (Other)
  Sender: FDA-Public Use
  Company Number: PHHY2014VE124739

PATIENT
  Sex: Female

DRUGS (5)
  1. TRILEPTAL [Suspect]
     Active Substance: OXCARBAZEPINE
     Dosage: 600 MG, DAILY (TRILEPTAL 300 MG)
     Route: 048
  2. TEKRON [Concomitant]
     Indication: ANTIOXIDANT THERAPY
     Dosage: 200 MG, DAILY
  3. TRILEPTAL [Suspect]
     Active Substance: OXCARBAZEPINE
     Dosage: 600 MG, DAILY
     Route: 048
  4. OXICODAL [Suspect]
     Active Substance: OXCARBAZEPINE
     Dosage: 100 MG, BID
  5. DAYAMINERAL [Concomitant]
     Dosage: UNK

REACTIONS (1)
  - Convulsion [Recovered/Resolved]
